FAERS Safety Report 15499855 (Version 2)
Quarter: 2018Q4

REPORT INFORMATION
  Report Type: Spontaneous
  Country: JP (occurrence: JP)
  Receive Date: 20181015
  Receipt Date: 20181105
  Transmission Date: 20190205
  Serious: Yes (Other)
  Sender: FDA-Public Use
  Company Number: JP-GUERBET-JP-20180229

PATIENT
  Age: 65 Year
  Sex: Female

DRUGS (2)
  1. LIPIODOL [Suspect]
     Active Substance: ETHIODIZED OIL
     Indication: THERAPEUTIC EMBOLISATION
     Route: 013
  2. ALCOHOL. [Concomitant]
     Active Substance: ALCOHOL
     Indication: THERAPEUTIC EMBOLISATION
     Route: 013

REACTIONS (5)
  - Hydronephrosis [Recovered/Resolved]
  - Product use in unapproved indication [Recovered/Resolved]
  - Tumour embolism [Recovered/Resolved]
  - Perinephric abscess [Recovered/Resolved]
  - Urinary tract obstruction [Recovered/Resolved]
